FAERS Safety Report 25739055 (Version 2)
Quarter: 2025Q4

REPORT INFORMATION
  Report Type: Spontaneous
  Country: US (occurrence: US)
  Receive Date: 20250829
  Receipt Date: 20251122
  Transmission Date: 20260117
  Serious: No
  Sender: MDD OPERATIONS
  Company Number: US-MDD US Operations-MDD202507-002762

PATIENT
  Age: 49 Year
  Sex: Male

DRUGS (2)
  1. ONAPGO [Suspect]
     Active Substance: APOMORPHINE HYDROCHLORIDE
     Indication: Product used for unknown indication
     Dates: start: 20250720
  2. ONAPGO [Suspect]
     Active Substance: APOMORPHINE HYDROCHLORIDE

REACTIONS (4)
  - Injection site nodule [Not Recovered/Not Resolved]
  - Dyskinesia [Unknown]
  - Infusion site haemorrhage [Unknown]
  - Device defective [Unknown]
